FAERS Safety Report 15315693 (Version 1)
Quarter: 2018Q3

REPORT INFORMATION
  Report Type: Spontaneous
  Country: RU (occurrence: RU)
  Receive Date: 20180824
  Receipt Date: 20180824
  Transmission Date: 20181010
  Serious: Yes (Life-Threatening)
  Sender: FDA-Public Use
  Company Number: RU-SA-2018SA215673

PATIENT
  Age: 59 Year
  Sex: Female
  Weight: 78 kg

DRUGS (5)
  1. TOUJEO [Suspect]
     Active Substance: INSULIN GLARGINE
     Dosage: 28 IU, UNK
     Route: 058
     Dates: start: 20180711, end: 20180725
  2. LISINOPRIL. [Concomitant]
     Active Substance: LISINOPRIL
     Dosage: UNKNOWN
     Route: 048
     Dates: start: 20180514
  3. HUMALOG [Concomitant]
     Active Substance: INSULIN LISPRO
     Indication: TYPE 2 DIABETES MELLITUS
     Dosage: UNKNOWN
     Route: 058
     Dates: start: 20180514
  4. BISOPROLOL [Concomitant]
     Active Substance: BISOPROLOL
     Dosage: UNKNOWN
     Route: 048
     Dates: start: 20180514
  5. ACECARDOL [Concomitant]
     Active Substance: ASPIRIN
     Dosage: UNKNOWN
     Route: 048
     Dates: start: 20180514

REACTIONS (5)
  - Malaise [Recovering/Resolving]
  - Asthenia [Recovering/Resolving]
  - Dyspnoea [Recovering/Resolving]
  - Blood pressure increased [Recovering/Resolving]
  - Hypoglycaemia [Recovering/Resolving]

NARRATIVE: CASE EVENT DATE: 20180711
